FAERS Safety Report 5078233-3 (Version None)
Quarter: 2006Q3

REPORT INFORMATION
  Report Type: 
  Country: None (occurrence: None)
  Receive Date: 20060811
  Receipt Date: 20060728
  Transmission Date: 20061208
  Serious: Yes (Other)
  Sender: FDA-Public Use
  Company Number: NO-AVENTIS-200618060GDDC

PATIENT
  Age: 19 Year
  Sex: Male

DRUGS (2)
  1. FLAGYL [Suspect]
     Indication: BORRELIA INFECTION
     Route: 048
     Dates: start: 20060717, end: 20060721
  2. BENZYLPENICILLIN [Concomitant]
     Indication: BORRELIA INFECTION
     Dosage: DOSE: 10 MIL/IE
     Route: 042

REACTIONS (5)
  - ALANINE AMINOTRANSFERASE INCREASED [None]
  - ASPARTATE AMINOTRANSFERASE INCREASED [None]
  - BACTERIAL INFECTION [None]
  - MUSCLE SPASMS [None]
  - PARAESTHESIA [None]
